FAERS Safety Report 9361211 (Version 1)
Quarter: 2013Q2

REPORT INFORMATION
  Report Type: Spontaneous
  Country: US (occurrence: US)
  Receive Date: 20130621
  Receipt Date: 20130621
  Transmission Date: 20140414
  Serious: Yes (Other)
  Sender: FDA-Public Use
  Company Number: US-ASTRAZENECA-2008UW20965

PATIENT
  Age: 52 Year
  Sex: Female
  Weight: 78.5 kg

DRUGS (8)
  1. SEROQUEL [Suspect]
     Route: 048
     Dates: start: 2004, end: 2010
  2. SEROQUEL [Suspect]
     Route: 048
     Dates: start: 20090311
  3. GEMFIBROZIL [Concomitant]
     Dates: start: 20090311
  4. NORTRIPTYLINE HCL [Concomitant]
     Dates: start: 20090311
  5. BACLOFEN [Concomitant]
     Dates: start: 20090326
  6. FLUOXETINE [Concomitant]
     Dates: start: 20090326
  7. ZOLPIDEM TARTRATE [Concomitant]
     Dates: start: 20090326
  8. DIOVAN HCT [Concomitant]
     Dosage: 160-12.5 MG
     Dates: start: 20090327

REACTIONS (1)
  - Pancreatitis [Unknown]
